FAERS Safety Report 6596077-8 (Version None)
Quarter: 2010Q1

REPORT INFORMATION
  Report Type: 
  Country: None (occurrence: None)
  Receive Date: 20100223
  Receipt Date: 20100219
  Transmission Date: 20100710
  Serious: Yes (Death, Hospitalization)
  Sender: FDA-Public Use
  Company Number: JP-BAYER-200913257BYL

PATIENT
  Age: 73 Year
  Sex: Male
  Weight: 60 kg

DRUGS (9)
  1. NEXAVAR [Suspect]
     Indication: HEPATIC NEOPLASM MALIGNANT
     Dosage: TOTAL DAILY DOSE: 400 MG  UNIT DOSE: 200 MG
     Route: 048
     Dates: start: 20090629, end: 20090824
  2. URSO 250 [Concomitant]
     Route: 048
     Dates: start: 20090225
  3. ALDACTONE [Concomitant]
     Route: 048
     Dates: start: 20090824
  4. ALDACTONE [Concomitant]
     Route: 048
     Dates: start: 20090225
  5. OMEPRAL [Concomitant]
     Route: 048
     Dates: start: 20090225
  6. LIVACT [Concomitant]
     Route: 048
     Dates: start: 20090225
  7. LASIX [Concomitant]
     Route: 048
     Dates: start: 20090525
  8. LASIX [Concomitant]
     Route: 048
     Dates: start: 20090824
  9. HOCHU-EKKI-TO [Concomitant]
     Route: 048
     Dates: start: 20090826

REACTIONS (6)
  - ASCITES [None]
  - BLOOD ALBUMIN DECREASED [None]
  - DECREASED APPETITE [None]
  - HEPATIC ENCEPHALOPATHY [None]
  - HYPOPHOSPHATAEMIA [None]
  - OESOPHAGEAL VARICES HAEMORRHAGE [None]
